FAERS Safety Report 8636191 (Version 2)
Quarter: 2013Q2

REPORT INFORMATION
  Report Type: Report from Study
  Country: FR (occurrence: FR)
  Receive Date: 20120626
  Receipt Date: 20130509
  Transmission Date: 20140414
  Serious: Yes (Other)
  Sender: FDA-Public Use
  Company Number: FR-ROCHE-1077267

PATIENT
  Sex: 0

DRUGS (2)
  1. BEVACIZUMAB [Suspect]
     Indication: NON-SMALL CELL LUNG CANCER METASTATIC
     Dosage: ON DAY 1
     Route: 065
  2. PACLITAXEL [Suspect]
     Indication: NON-SMALL CELL LUNG CANCER METASTATIC
     Dosage: ON DAYS 1, 8, 15
     Route: 065

REACTIONS (13)
  - Neutropenia [Unknown]
  - Onycholysis [Unknown]
  - Infection [Unknown]
  - Pulmonary haemorrhage [Unknown]
  - Neuropathy peripheral [Unknown]
  - Hypertension [Unknown]
  - Renal failure acute [Unknown]
  - Epistaxis [Unknown]
  - Anaemia [Unknown]
  - Diarrhoea [Unknown]
  - Nausea [Unknown]
  - Vomiting [Unknown]
  - Proteinuria [Unknown]
